FAERS Safety Report 9725124 (Version 1)
Quarter: 2013Q4

REPORT INFORMATION
  Report Type: Spontaneous
  Country: US (occurrence: US)
  Receive Date: 20131203
  Receipt Date: 20131203
  Transmission Date: 20140711
  Serious: Yes (Hospitalization)
  Sender: FDA-Public Use
  Company Number: US-BIOGENIDEC-2013BI114952

PATIENT
  Age: 57 Year
  Sex: Female

DRUGS (10)
  1. TECFIDERA [Suspect]
     Indication: MULTIPLE SCLEROSIS
     Route: 048
     Dates: start: 201307, end: 20131113
  2. FAMOTIDINE [Concomitant]
  3. LAMOTRIGINE [Concomitant]
  4. PROVIGIL [Concomitant]
  5. SYNTHROID [Concomitant]
  6. METHYLPREDNISOLONE [Concomitant]
  7. ATORVASTATIN CALCIUM [Concomitant]
  8. LORATADINE [Concomitant]
  9. METROPOLOL SUCCINATE ER [Concomitant]
  10. DIAZEPAM [Concomitant]

REACTIONS (1)
  - Urticaria [Unknown]
